FAERS Safety Report 8462541-X (Version None)
Quarter: 2012Q2

REPORT INFORMATION
  Report Type: 
  Country: None (occurrence: None)
  Receive Date: 20120607
  Receipt Date: 20120531
  Transmission Date: 20120825
  Serious: Yes (Other)
  Sender: FDA-Public Use
  Company Number: 2011029193

PATIENT
  Sex: Female
  Weight: 118.2 kg

DRUGS (5)
  1. HIZENTRA [Suspect]
     Indication: HYPOGAMMAGLOBULINAEMIA
     Dosage: (75 ML 1X/WEEK, 20 ML VIAL, 5 ML VIAL SUBCUTANEOUS)
     Route: 058
     Dates: start: 20110702
  2. LIDOCAINE CREAM (LIDOCAINE) [Concomitant]
  3. HIZENTRA [Suspect]
     Indication: IMMUNODEFICIENCY COMMON VARIABLE
     Dosage: (5 ML VIAL SUBCUTANEOUS
     Route: 058
     Dates: start: 20110702
  4. HIZENTRA [Suspect]
     Dosage: SUBCUTANEOUS
     Route: 058
     Dates: start: 20110713
  5. HIZENTRA [Suspect]
     Dosage: SUBCUTANEOUS
     Route: 058
     Dates: start: 20110713

REACTIONS (6)
  - VOMITING [None]
  - OROPHARYNGEAL PAIN [None]
  - FATIGUE [None]
  - INFUSION SITE REACTION [None]
  - HEADACHE [None]
  - NAUSEA [None]
